FAERS Safety Report 17213480 (Version 1)
Quarter: 2019Q4

REPORT INFORMATION
  Report Type: Spontaneous
  Country: SI (occurrence: SI)
  Receive Date: 20191230
  Receipt Date: 20191230
  Transmission Date: 20200122
  Serious: Yes (Death, Hospitalization, Other)
  Sender: FDA-Public Use
  Company Number: SI-FERA PHARMACEUTICALS, LLC-2019PRG00275

PATIENT
  Age: 79 Year
  Sex: Male

DRUGS (1)
  1. DEXAMETHASONE. [Suspect]
     Active Substance: DEXAMETHASONE
     Indication: GLIOMATOSIS CEREBRI
     Dosage: 12 MG, 1X/DAY
     Route: 065

REACTIONS (13)
  - Acute respiratory distress syndrome [Fatal]
  - Aspergillus infection [Fatal]
  - Candidiasis of trachea [Unknown]
  - Septic shock [Fatal]
  - Colitis [Unknown]
  - Renal failure [Fatal]
  - Ileus paralytic [Unknown]
  - Strongyloidiasis [Fatal]
  - Respiratory failure [Fatal]
  - Sepsis [Fatal]
  - Immunosuppression [Fatal]
  - Pneumonia [Fatal]
  - Hepatic failure [Fatal]
